FAERS Safety Report 9019339 (Version 1)
Quarter: 2013Q1

REPORT INFORMATION
  Report Type: Spontaneous
  Country: US (occurrence: US)
  Receive Date: 20130118
  Receipt Date: 20130118
  Transmission Date: 20140127
  Serious: No
  Sender: FDA-Public Use
  Company Number: US-ASTRAZENECA-2013SE00735

PATIENT
  Sex: 0

DRUGS (1)
  1. NEXIUM [Suspect]
     Route: 048
     Dates: start: 2007

REACTIONS (4)
  - Gastrooesophageal reflux disease [Unknown]
  - Sleep disorder due to general medical condition, insomnia type [Unknown]
  - Insomnia [Unknown]
  - Drug dose omission [Unknown]
